FAERS Safety Report 20150610 (Version 2)
Quarter: 2022Q1

REPORT INFORMATION
  Report Type: Spontaneous
  Country: JP (occurrence: JP)
  Receive Date: 20211206
  Receipt Date: 20220301
  Transmission Date: 20220423
  Serious: Yes (Other)
  Sender: FDA-Public Use
  Company Number: JP-TAKEDA-2021TJP026869

PATIENT
  Age: 9 Decade
  Sex: Female

DRUGS (2)
  1. VECTIBIX [Suspect]
     Active Substance: PANITUMUMAB
     Indication: Colorectal cancer
     Dosage: UNK
     Route: 041
  2. VECTIBIX [Suspect]
     Active Substance: PANITUMUMAB
     Dosage: UNK
     Route: 041

REACTIONS (9)
  - Metastases to liver [Unknown]
  - Colorectal cancer [Unknown]
  - Disease progression [Unknown]
  - Myalgia [Recovered/Resolved]
  - Electrolyte imbalance [Not Recovered/Not Resolved]
  - Arthralgia [Unknown]
  - Physical deconditioning [Unknown]
  - Skin disorder [Recovered/Resolved]
  - Diarrhoea [Recovered/Resolved]

NARRATIVE: CASE EVENT DATE: 20210501
